FAERS Safety Report 5892650-0 (Version None)
Quarter: 2008Q3

REPORT INFORMATION
  Report Type: 
  Country: None (occurrence: None)
  Receive Date: 20080923
  Receipt Date: 20080915
  Transmission Date: 20090109
  Serious: Yes (Hospitalization)
  Sender: FDA-Public Use
  Company Number: PHHY2008IL21516

PATIENT
  Age: 63 Year
  Sex: Male

DRUGS (6)
  1. LEPONEX [Suspect]
     Dosage: 100 MG
     Route: 048
  2. CLOZAPINE [Suspect]
  3. ATENOLOL [Concomitant]
  4. ASPIRIN [Concomitant]
  5. OMEPRAZOLE [Concomitant]
  6. PRAVASTATIN [Concomitant]

REACTIONS (6)
  - CONFUSIONAL STATE [None]
  - DRUG PRESCRIBING ERROR [None]
  - FALL [None]
  - GAIT DISTURBANCE [None]
  - NERVOUS SYSTEM DISORDER [None]
  - WRONG DRUG ADMINISTERED [None]
